FAERS Safety Report 7502643-5 (Version None)
Quarter: 2011Q2

REPORT INFORMATION
  Report Type: 
  Country: None (occurrence: None)
  Receive Date: 20110525
  Receipt Date: 20110512
  Transmission Date: 20111010
  Serious: Yes (Hospitalization, Other)
  Sender: FDA-Public Use
  Company Number: PHHY2010CA71514

PATIENT
  Sex: Female

DRUGS (2)
  1. SANDOSTATIN LAR [Suspect]
     Dosage: 20 MG EVERY 4 WEEKS
     Route: 030
     Dates: end: 20110310
  2. SANDOSTATIN LAR [Suspect]
     Indication: ACROMEGALY
     Dosage: 20 MG, ONCE A MONTH
     Route: 030
     Dates: start: 20100825

REACTIONS (6)
  - NASOPHARYNGITIS [None]
  - BLOOD PRESSURE INCREASED [None]
  - EPISTAXIS [None]
  - ABNORMAL FAECES [None]
  - ABDOMINAL DISTENSION [None]
  - URINARY TRACT INFECTION [None]
